FAERS Safety Report 14244580 (Version 3)
Quarter: 2017Q4

REPORT INFORMATION
  Report Type: Spontaneous
  Country: AR (occurrence: AR)
  Receive Date: 20171201
  Receipt Date: 20171213
  Transmission Date: 20180321
  Serious: Yes (Hospitalization, Other)
  Sender: FDA-Public Use
  Company Number: AR-ABBVIE-17K-007-2180491-00

PATIENT
  Age: 76 Year
  Sex: Male

DRUGS (2)
  1. METHOTREXATE. [Suspect]
     Active Substance: METHOTREXATE
     Indication: RHEUMATOID ARTHRITIS
     Route: 065
     Dates: start: 2007
  2. HUMIRA [Suspect]
     Active Substance: ADALIMUMAB
     Indication: RHEUMATOID ARTHRITIS
     Route: 065
     Dates: start: 2008

REACTIONS (4)
  - Respiratory failure [Recovering/Resolving]
  - Drug hypersensitivity [Unknown]
  - Pneumonitis [Unknown]
  - Lung infiltration [Unknown]
